FAERS Safety Report 6118457-7 (Version None)
Quarter: 2009Q1

REPORT INFORMATION
  Report Type: 
  Country: None (occurrence: None)
  Receive Date: 20090314
  Receipt Date: 20090225
  Transmission Date: 20090719
  Serious: No
  Sender: FDA-Public Use
  Company Number: US-ABBOTT-09P-163-0557828-00

PATIENT
  Sex: Female
  Weight: 72.186 kg

DRUGS (14)
  1. HUMIRA [Suspect]
     Indication: ANKYLOSING SPONDYLITIS
     Route: 058
     Dates: start: 20090201
  2. HUMIRA [Suspect]
     Indication: ARTHRITIS
  3. HUMIRA [Suspect]
     Indication: ANKYLOSING SPONDYLITIS
  4. PREVACID [Concomitant]
     Indication: GASTROOESOPHAGEAL REFLUX DISEASE
     Route: 048
  5. ULTRACET [Concomitant]
     Indication: PAIN
     Route: 048
  6. ALLEGRA [Concomitant]
     Indication: HYPERSENSITIVITY
     Route: 048
  7. VOLTAREN [Concomitant]
     Indication: ARTHRITIS
  8. METHOTREXATE [Concomitant]
     Indication: ARTHRITIS
     Dosage: 2.5 MG 1 IN 1 WEEKS
  9. FLEXERIL [Concomitant]
     Indication: ARTHRITIS
     Route: 048
  10. ESTRADIOL [Concomitant]
     Indication: HORMONE REPLACEMENT THERAPY
     Route: 048
  11. AVAPRO [Concomitant]
     Indication: HYPERTENSION
  12. MAXZIDE [Concomitant]
     Indication: HYPERTENSION
     Dosage: 75-50MG, 1 IN 1 DAYS
     Route: 048
  13. SYNTHROID [Concomitant]
     Indication: HYPOTHYROIDISM
     Dosage: MON, WED, AND FRI
     Route: 048
  14. SYNTHROID [Concomitant]
     Dosage: 4 DAYS A WEEK
     Route: 048

REACTIONS (1)
  - INJECTION SITE IRRITATION [None]
